FAERS Safety Report 24607810 (Version 1)
Quarter: 2024Q4

REPORT INFORMATION
  Report Type: Spontaneous
  Country: DE (occurrence: DE)
  Receive Date: 20241112
  Receipt Date: 20241112
  Transmission Date: 20250114
  Serious: Yes (Hospitalization)
  Sender: BAUSCH AND LOMB
  Company Number: DE-SA-SAC20211115000984

PATIENT
  Age: 74 Year
  Sex: Female
  Weight: 93 kg

DRUGS (31)
  1. DEXAMETHASONE [Suspect]
     Active Substance: DEXAMETHASONE
     Indication: Plasma cell myeloma refractory
     Dosage: 20 MG, QOW
     Route: 065
     Dates: start: 20211026, end: 20211026
  2. DEXAMETHASONE [Suspect]
     Active Substance: DEXAMETHASONE
     Dosage: 20 MG, QD
     Route: 065
     Dates: start: 20210601, end: 20210621
  3. DEXAMETHASONE [Suspect]
     Active Substance: DEXAMETHASONE
     Dosage: 20 MG, QD
     Route: 065
     Dates: start: 20210706, end: 20210727
  4. DEXAMETHASONE [Suspect]
     Active Substance: DEXAMETHASONE
     Dosage: 20 MG, QD
     Route: 065
     Dates: start: 20210728, end: 20210728
  5. DEXAMETHASONE [Suspect]
     Active Substance: DEXAMETHASONE
     Dosage: 40 MG, QD
     Route: 065
     Dates: start: 20210622, end: 20210622
  6. DEXAMETHASONE [Suspect]
     Active Substance: DEXAMETHASONE
     Dosage: 20 MG, QW
     Route: 065
     Dates: start: 20210817, end: 20210901
  7. DEXAMETHASONE [Suspect]
     Active Substance: DEXAMETHASONE
     Dosage: 40 MG, QD
     Route: 065
     Dates: start: 20210907, end: 20210907
  8. DEXAMETHASONE [Suspect]
     Active Substance: DEXAMETHASONE
     Dosage: 20 MG, QW
     Route: 065
     Dates: start: 20210921, end: 20211006
  9. DEXAMETHASONE [Suspect]
     Active Substance: DEXAMETHASONE
     Dosage: 40 MG, QW
     Route: 065
     Dates: start: 20211012, end: 20211012
  10. DEXAMETHASONE [Suspect]
     Active Substance: DEXAMETHASONE
     Dosage: 20 MG, QW
     Route: 065
     Dates: start: 20211026, end: 20211103
  11. ISATUXIMAB [Suspect]
     Active Substance: ISATUXIMAB
     Indication: Plasma cell myeloma refractory
     Dosage: 740 MG, QOW
     Route: 065
     Dates: start: 20211026, end: 20211026
  12. ISATUXIMAB [Suspect]
     Active Substance: ISATUXIMAB
     Dosage: 740 MG, QW
     Route: 065
     Dates: start: 20210601, end: 20210628
  13. ISATUXIMAB [Suspect]
     Active Substance: ISATUXIMAB
     Dosage: 740 MG, BIW
     Route: 065
     Dates: start: 20210706, end: 20210729
  14. ISATUXIMAB [Suspect]
     Active Substance: ISATUXIMAB
     Dosage: 740 MG, BIW
     Route: 065
     Dates: start: 20210817, end: 20210831
  15. ISATUXIMAB [Suspect]
     Active Substance: ISATUXIMAB
     Dosage: 740 MG, BIW
     Route: 065
     Dates: start: 20210630, end: 20210705
  16. ISATUXIMAB [Suspect]
     Active Substance: ISATUXIMAB
     Dosage: 740 MG, BIW
     Route: 065
     Dates: start: 20210921, end: 20211005
  17. ISATUXIMAB [Suspect]
     Active Substance: ISATUXIMAB
     Dosage: 740 MG, BIW
     Route: 065
     Dates: start: 20211026, end: 20211104
  18. CARFILZOMIB [Suspect]
     Active Substance: CARFILZOMIB
     Indication: Plasma cell myeloma refractory
     Dosage: 38 MG, QOW
     Route: 065
     Dates: start: 20211026, end: 20211026
  19. CARFILZOMIB [Suspect]
     Active Substance: CARFILZOMIB
     Dosage: 38 MG, QD
     Route: 065
     Dates: start: 20210601, end: 20210602
  20. CARFILZOMIB [Suspect]
     Active Substance: CARFILZOMIB
     Dosage: 105 MG, QD
     Route: 065
     Dates: start: 20210608, end: 20210629
  21. CARFILZOMIB [Suspect]
     Active Substance: CARFILZOMIB
     Dosage: 105 MG, QD
     Route: 065
     Dates: start: 20210706, end: 20210721
  22. CARFILZOMIB [Suspect]
     Active Substance: CARFILZOMIB
     Dosage: 105 MG, QW
     Route: 065
     Dates: start: 20210817, end: 20210901
  23. CARFILZOMIB [Suspect]
     Active Substance: CARFILZOMIB
     Dosage: 105 MG, QW
     Route: 065
     Dates: start: 20210921, end: 20211006
  24. CARFILZOMIB [Suspect]
     Active Substance: CARFILZOMIB
     Dosage: 38 MG, QW
     Route: 065
     Dates: start: 20211026, end: 20211103
  25. LEVETIRACETAM [Concomitant]
     Active Substance: LEVETIRACETAM
     Indication: Epilepsy
     Dosage: 750 MG, BID (1-0-1-0)
     Route: 065
     Dates: start: 20211111
  26. RAMIPRIL [Concomitant]
     Active Substance: RAMIPRIL
     Indication: Hypertension
     Dosage: UNK
     Route: 065
     Dates: start: 2015, end: 20210613
  27. ELIQUIS [Concomitant]
     Active Substance: APIXABAN
     Indication: Atrial fibrillation
     Dosage: UNK
     Route: 065
     Dates: start: 202009
  28. PANTOPRAZOLE SODIUM [Concomitant]
     Active Substance: PANTOPRAZOLE SODIUM
     Indication: Prophylaxis
     Dosage: UNK
     Route: 065
     Dates: start: 2020
  29. TORSEMIDE [Concomitant]
     Active Substance: TORSEMIDE
     Indication: Hypertension
     Dosage: UNK
     Route: 065
     Dates: start: 20210812, end: 20210816
  30. BISOPROLOL [Concomitant]
     Active Substance: BISOPROLOL\BISOPROLOL FUMARATE
     Indication: Hypertension
     Dosage: UNK
     Dates: start: 20210812
  31. CANDESARTAN [Concomitant]
     Active Substance: CANDESARTAN
     Indication: Hypertension
     Dosage: UNK
     Route: 065
     Dates: start: 20210812

REACTIONS (1)
  - Epilepsy [Recovered/Resolved]

NARRATIVE: CASE EVENT DATE: 20211108
